FAERS Safety Report 10437237 (Version 1)
Quarter: 2014Q3

REPORT INFORMATION
  Report Type: Spontaneous
  Country: US (occurrence: US)
  Receive Date: 20140908
  Receipt Date: 20140908
  Transmission Date: 20150326
  Serious: No
  Sender: FDA-Public Use
  Company Number: US-BRISTOL-MYERS SQUIBB COMPANY-20892600

PATIENT
  Age: 57 Year
  Sex: Female
  Weight: 56.69 kg

DRUGS (5)
  1. VITAMIN D [Concomitant]
     Active Substance: CHOLECALCIFEROL
  2. ACTIVELLA [Concomitant]
     Active Substance: ESTRADIOL\NORETHINDRONE ACETATE
  3. BABY ASPIRIN [Concomitant]
     Active Substance: ASPIRIN
  4. ABILIFY [Suspect]
     Active Substance: ARIPIPRAZOLE
     Dosage: PAST 2 TIMES SHE CUT HER TABLETS IN HALF AND SHE HAS TAKEN 1 MG MEDICATION.
  5. PAXIL [Concomitant]
     Active Substance: PAROXETINE HYDROCHLORIDE

REACTIONS (2)
  - Thirst [Unknown]
  - Nausea [Not Recovered/Not Resolved]
